FAERS Safety Report 18486196 (Version 6)
Quarter: 2023Q2

REPORT INFORMATION
  Report Type: Report from Study
  Country: CA (occurrence: CA)
  Receive Date: 20201110
  Receipt Date: 20230502
  Transmission Date: 20230722
  Serious: Yes (Hospitalization, Other)
  Sender: FDA-Public Use
  Company Number: PHHY2018CA139114

PATIENT
  Age: 23 Year
  Sex: Female

DRUGS (12)
  1. COSENTYX [Suspect]
     Active Substance: SECUKINUMAB
     Indication: Ankylosing spondylitis
     Dosage: 150 MG, QMO
     Route: 058
     Dates: start: 20180808
  2. COSENTYX [Suspect]
     Active Substance: SECUKINUMAB
     Dosage: 150 MG, QMO
     Route: 058
     Dates: start: 20181005
  3. COSENTYX [Suspect]
     Active Substance: SECUKINUMAB
     Dosage: 150 MG, QMO
     Route: 058
     Dates: start: 2019
  4. COSENTYX [Suspect]
     Active Substance: SECUKINUMAB
     Dosage: 150 MG, Q3W
     Route: 058
     Dates: start: 20190329
  5. COSENTYX [Suspect]
     Active Substance: SECUKINUMAB
     Dosage: 150 MG, QMO
     Route: 058
  6. COSENTYX [Suspect]
     Active Substance: SECUKINUMAB
     Dosage: 150 MG, Q3W
     Route: 058
     Dates: end: 20220831
  7. COSENTYX [Suspect]
     Active Substance: SECUKINUMAB
     Dosage: UNK, (AT THE END OF AUGUST OR BEGINNING OF SEPTEMBER 2022)
     Route: 065
  8. KETOROLAC [Concomitant]
     Active Substance: KETOROLAC TROMETHAMINE
     Indication: Product used for unknown indication
     Dosage: UNK
     Route: 048
  9. NAPROXEN [Concomitant]
     Active Substance: NAPROXEN
     Indication: Product used for unknown indication
     Dosage: UNK, BID
     Route: 048
  10. IBUPROFEN [Concomitant]
     Active Substance: IBUPROFEN
     Indication: Product used for unknown indication
     Dosage: UNK, PRN
     Route: 065
  11. TYLENOL [Concomitant]
     Active Substance: ACETAMINOPHEN
     Indication: Product used for unknown indication
     Dosage: UNK, PRN (EXTRA STRENGTH, OTC)
     Route: 048
  12. VOLTAREN [Concomitant]
     Active Substance: DICLOFENAC SODIUM
     Indication: Product used for unknown indication
     Dosage: UNK, PRN
     Route: 061

REACTIONS (15)
  - Haematochezia [Unknown]
  - Spondyloarthropathy [Unknown]
  - Joint stiffness [Unknown]
  - Condition aggravated [Unknown]
  - Oropharyngeal pain [Unknown]
  - Sinus congestion [Unknown]
  - Rash [Unknown]
  - Respiratory disorder [Recovering/Resolving]
  - Body tinea [Unknown]
  - Polycystic ovaries [Unknown]
  - Stress [Unknown]
  - Pharyngitis streptococcal [Unknown]
  - Rhinorrhoea [Unknown]
  - Off label use [Unknown]
  - Therapeutic response shortened [Unknown]

NARRATIVE: CASE EVENT DATE: 20181001
